FAERS Safety Report 18467330 (Version 1)
Quarter: 2020Q4

REPORT INFORMATION
  Report Type: Spontaneous
  Country: US (occurrence: US)
  Receive Date: 20201103
  Receipt Date: 20201103
  Transmission Date: 20210114
  Serious: Yes (Life-Threatening, Hospitalization, Disabling)
  Sender: FDA-Public Use
  Company Number: None

PATIENT
  Age: 76 Year
  Sex: Male
  Weight: 72.57 kg

DRUGS (26)
  1. FERROUS SULFATE. [Concomitant]
     Active Substance: FERROUS SULFATE
  2. MONTELUKAST [Concomitant]
     Active Substance: MONTELUKAST SODIUM
  3. MULTI-VITAMIN [Concomitant]
     Active Substance: .ALPHA.-TOCOPHEROL ACETATE, DL-\ASCORBIC ACID\CYANOCOBALAMIN\FLUORIDE ION\FOLIC ACID\NIACIN\PYRIDOXINE\RIBOFLAVIN\THIAMINE\VITAMIN A\VITAMIN D
  4. ATORVASTATIN [Concomitant]
     Active Substance: ATORVASTATIN
  5. CICLOPIROX SHAMPOO [Concomitant]
     Active Substance: CICLOPIROX
  6. FEXOFENADINE [Concomitant]
     Active Substance: FEXOFENADINE HYDROCHLORIDE
  7. FLUDROCORTISONE [Concomitant]
     Active Substance: FLUDROCORTISONE
  8. FLUTICASONE PROPIONTE [Concomitant]
  9. IPRATROPIUM-ALBURTEL [Concomitant]
  10. ATIVAN [Suspect]
     Active Substance: LORAZEPAM
     Indication: AGITATION
     Dosage: ?          QUANTITY:1 DF DOSAGE FORM;?
     Route: 058
     Dates: start: 202002, end: 20200229
  11. ASPIRIN. [Suspect]
     Active Substance: ASPIRIN
  12. QUETIPINE [Suspect]
     Active Substance: QUETIAPINE
  13. DICLOFENAC [Concomitant]
     Active Substance: DICLOFENAC
  14. RESTASIS MULTIDOSE 0.5% OPHTHALMIC EMULSION [Concomitant]
  15. DESONIDE. [Concomitant]
     Active Substance: DESONIDE
  16. FINASTERIDE. [Concomitant]
     Active Substance: FINASTERIDE
  17. SPIRIVA RESPIMAT [Concomitant]
     Active Substance: TIOTROPIUM BROMIDE
  18. HUMIRA [Concomitant]
     Active Substance: ADALIMUMAB
  19. POTASSIUM [Concomitant]
     Active Substance: POTASSIUM
  20. MIRALAX [Concomitant]
     Active Substance: POLYETHYLENE GLYCOL 3350
  21. RYTARY [Concomitant]
     Active Substance: CARBIDOPA\LEVODOPA
  22. SPIRONOLACTONE. [Concomitant]
     Active Substance: SPIRONOLACTONE
  23. TADALAFIL. [Suspect]
     Active Substance: TADALAFIL
  24. LANSOPRAZOLE. [Concomitant]
     Active Substance: LANSOPRAZOLE
  25. BUDESONIDE. [Concomitant]
     Active Substance: BUDESONIDE
  26. FLUDROCORTISONE [Concomitant]
     Active Substance: FLUDROCORTISONE

REACTIONS (31)
  - Heart rate decreased [None]
  - Sedation complication [None]
  - Fall [None]
  - Parkinson^s disease [None]
  - Unresponsive to stimuli [None]
  - Product dose omission issue [None]
  - Insomnia [None]
  - Physical assault [None]
  - Anxiety [None]
  - Condition aggravated [None]
  - Suicidal ideation [None]
  - Hallucination [None]
  - Derealisation [None]
  - Amnesia [None]
  - Agitation [None]
  - Libido increased [None]
  - Product prescribing issue [None]
  - Cerebrovascular accident [None]
  - Balance disorder [None]
  - Aggression [None]
  - Adverse drug reaction [None]
  - Drug interaction [None]
  - Electrolyte imbalance [None]
  - Brain injury [None]
  - Hypoxia [None]
  - Psychotic disorder [None]
  - Cognitive disorder [None]
  - Disease progression [None]
  - Mental disorder [None]
  - Mood altered [None]
  - Pneumonia [None]

NARRATIVE: CASE EVENT DATE: 20200228
